FAERS Safety Report 20672017 (Version 1)
Quarter: 2022Q2

REPORT INFORMATION
  Report Type: Other
  Country: AE (occurrence: None)
  Receive Date: 20220405
  Receipt Date: 20220405
  Transmission Date: 20220720
  Serious: Yes (Other)
  Sender: FDA-Public Use
  Company Number: AE-ROCHE-3054070

PATIENT
  Sex: Male

DRUGS (1)
  1. OCREVUS [Suspect]
     Active Substance: OCRELIZUMAB
     Indication: Primary progressive multiple sclerosis
     Route: 065

REACTIONS (11)
  - Musculoskeletal stiffness [Unknown]
  - Limb discomfort [Unknown]
  - Gait inability [Unknown]
  - Hemiparesis [Unknown]
  - Hyperreflexia [Unknown]
  - Hypoaesthesia [Unknown]
  - Dysmetria [Unknown]
  - Tremor [Unknown]
  - Myoclonus [Unknown]
  - Gait spastic [Unknown]
  - Demyelination [Unknown]
